FAERS Safety Report 17269191 (Version 1)
Quarter: 2020Q1

REPORT INFORMATION
  Report Type: Spontaneous
  Country: US (occurrence: US)
  Receive Date: 20200114
  Receipt Date: 20200114
  Transmission Date: 20200409
  Serious: Yes (Hospitalization)
  Sender: FDA-Public Use
  Company Number: None

PATIENT
  Age: 54 Year
  Sex: Male
  Weight: 80.9 kg

DRUGS (13)
  1. RUCAPARIB [Suspect]
     Active Substance: RUCAPARIB
     Indication: SMALL CELL LUNG CANCER
     Route: 048
     Dates: start: 20191212, end: 20200108
  2. ASA [Concomitant]
     Active Substance: ASPIRIN
  3. TIOTROPIUM-OLODATEROL INHALER [Concomitant]
  4. NIVOLUMAB [Suspect]
     Active Substance: NIVOLUMAB
     Indication: SMALL CELL LUNG CANCER
     Dosage: ?          OTHER FREQUENCY:Q4WKS;?
     Route: 042
     Dates: start: 20191212, end: 20191212
  5. ATORVASTATIN [Concomitant]
     Active Substance: ATORVASTATIN
  6. OXYCODONE [Concomitant]
     Active Substance: OXYCODONE
  7. ZOFRAN [Concomitant]
     Active Substance: ONDANSETRON HYDROCHLORIDE
  8. BENZONATATE. [Concomitant]
     Active Substance: BENZONATATE
  9. BACLOFEN. [Concomitant]
     Active Substance: BACLOFEN
  10. BOOST [Concomitant]
     Active Substance: DIETARY SUPPLEMENT
  11. ALBUTEROL INHALER [Concomitant]
     Active Substance: ALBUTEROL
  12. PROCHLORPERAZINE. [Concomitant]
     Active Substance: PROCHLORPERAZINE
  13. MARINOL [Concomitant]
     Active Substance: DRONABINOL

REACTIONS (8)
  - Abdominal pain upper [None]
  - Pneumonia [None]
  - Cough [None]
  - Diarrhoea [None]
  - Hypophagia [None]
  - Dyspnoea [None]
  - Influenza virus test positive [None]
  - Pyrexia [None]

NARRATIVE: CASE EVENT DATE: 20200113
